FAERS Safety Report 9172900 (Version 1)
Quarter: 2013Q1

REPORT INFORMATION
  Report Type: Spontaneous
  Country: JP (occurrence: JP)
  Receive Date: 20130319
  Receipt Date: 20130319
  Transmission Date: 20140127
  Serious: Yes (Other)
  Sender: FDA-Public Use
  Company Number: JP-009507513-1303JPN007907

PATIENT
  Age: 80 Year
  Sex: Female

DRUGS (1)
  1. COSOPT OPHTHALMIC SOLUTION [Suspect]
     Route: 047

REACTIONS (2)
  - Gastric cancer [Unknown]
  - Throat irritation [Unknown]
